FAERS Safety Report 16009678 (Version 1)
Quarter: 2019Q1

REPORT INFORMATION
  Report Type: Spontaneous
  Country: CH (occurrence: CH)
  Receive Date: 20190225
  Receipt Date: 20190225
  Transmission Date: 20190418
  Serious: Yes (Other)
  Sender: FDA-Public Use
  Company Number: CH-ROCHE-2270076

PATIENT
  Sex: Female

DRUGS (5)
  1. AVASTIN [Suspect]
     Active Substance: BEVACIZUMAB
     Route: 042
     Dates: start: 201811
  2. IRINOTECAN [Concomitant]
     Active Substance: IRINOTECAN
     Indication: ANAPLASTIC ASTROCYTOMA
  3. TEMOZOLOMID [Concomitant]
     Active Substance: TEMOZOLOMIDE
     Indication: ANAPLASTIC ASTROCYTOMA
  4. LOMUSTINE. [Concomitant]
     Active Substance: LOMUSTINE
     Indication: ANAPLASTIC ASTROCYTOMA
     Route: 065
     Dates: start: 2016
  5. AVASTIN [Suspect]
     Active Substance: BEVACIZUMAB
     Indication: ANAPLASTIC ASTROCYTOMA
     Route: 042
     Dates: start: 2016

REACTIONS (1)
  - Anaplastic astrocytoma [Unknown]
